FAERS Safety Report 18646427 (Version 1)
Quarter: 2020Q4

REPORT INFORMATION
  Report Type: Spontaneous
  Country: US (occurrence: US)
  Receive Date: 20201222
  Receipt Date: 20201222
  Transmission Date: 20210114
  Serious: Yes (Hospitalization)
  Sender: FDA-Public Use
  Company Number: US-STRIDES ARCOLAB LIMITED-2020SP010821

PATIENT
  Age: 75 Year
  Sex: Male

DRUGS (4)
  1. MYCOPHENOLATE MOFETIL. [Suspect]
     Active Substance: MYCOPHENOLATE MOFETIL
     Indication: RENAL TRANSPLANT
     Dosage: UNK
     Route: 065
  2. PREDNISOLONE. [Suspect]
     Active Substance: PREDNISOLONE
     Indication: HERPES ZOSTER REACTIVATION
     Dosage: UNK
     Route: 065
  3. PREDNISOLONE. [Suspect]
     Active Substance: PREDNISOLONE
     Indication: RENAL TRANSPLANT
     Dosage: UNK
     Route: 065
  4. TACROLIMUS. [Suspect]
     Active Substance: TACROLIMUS
     Indication: RENAL TRANSPLANT
     Dosage: UNK
     Route: 065

REACTIONS (17)
  - Herpes zoster reactivation [Unknown]
  - Rash [Unknown]
  - Hallucination [Unknown]
  - Cerebral disorder [Unknown]
  - Mental disorder [Recovered/Resolved]
  - Back pain [Unknown]
  - Polyneuropathy [Unknown]
  - Varicella zoster virus infection [Not Recovered/Not Resolved]
  - Hyporeflexia [Unknown]
  - Encephalopathy [Unknown]
  - Disorientation [Unknown]
  - Encephalitis viral [Unknown]
  - Paralysis [Unknown]
  - Atrophy [Unknown]
  - Confusional state [Unknown]
  - Muscle contractions involuntary [Unknown]
  - Muscular weakness [Recovered/Resolved]
